FAERS Safety Report 5744348-7 (Version None)
Quarter: 2008Q2

REPORT INFORMATION
  Report Type: 
  Country: None (occurrence: None)
  Receive Date: 20080520
  Receipt Date: 20080508
  Transmission Date: 20081010
  Serious: Yes (Disabling)
  Sender: FDA-Public Use
  Company Number: US-ELI_LILLY_AND_COMPANY-US200704001510

PATIENT
  Sex: Female
  Weight: 59.864 kg

DRUGS (15)
  1. FORTEO [Suspect]
     Indication: OSTEOPOROSIS
     Dosage: 20 UG, DAILY (1/D)
     Dates: start: 20050701, end: 20070301
  2. FORTEO [Suspect]
     Dosage: 20 UG, DAILY (1/D)
     Dates: start: 20070101
  3. FORTEO [Suspect]
     Dosage: 20 UG, DAILY (1/D)
     Dates: end: 20080301
  4. NEURONTIN [Concomitant]
     Indication: PAIN IN EXTREMITY
     Dosage: 600 MG, 3/D
  5. PERCOCET [Concomitant]
     Indication: PAIN IN EXTREMITY
     Dosage: 5 UNK, AS NEEDED
  6. POTASSIUM CHLORIDE [Concomitant]
     Dosage: 20 MEQ, 2/D
  7. CALCIUM [Concomitant]
     Dosage: 1000 MG, DAILY (1/D)
  8. ALPRAZOLAM [Concomitant]
     Dosage: 0.5 UNK, 4/D
  9. VITAMIN D [Concomitant]
  10. VITAMIN B-12 [Concomitant]
     Route: 060
  11. VITAMIN B-12 [Concomitant]
  12. FOLIC ACID [Concomitant]
  13. MAGNESIUM [Concomitant]
  14. CYMBALTA [Concomitant]
     Dosage: 30 MG, DAILY (1/D)
  15. GLYCOLAX [Concomitant]
     Dosage: 1 D/F, 2/D

REACTIONS (4)
  - HYPOTONIA [None]
  - MYALGIA [None]
  - NEUROPATHY PERIPHERAL [None]
  - PAIN IN EXTREMITY [None]
